FAERS Safety Report 13956793 (Version 1)
Quarter: 2017Q3

REPORT INFORMATION
  Report Type: Spontaneous
  Country: CN (occurrence: CN)
  Receive Date: 20170911
  Receipt Date: 20170911
  Transmission Date: 20171128
  Serious: Yes (Hospitalization, Other)
  Sender: FDA-Public Use
  Company Number: CN-ASTELLAS-2017US035547

PATIENT
  Age: 3 Year
  Sex: Female

DRUGS (16)
  1. PREDNISONE ACETATE [Concomitant]
     Active Substance: PREDNISONE ACETATE
     Indication: NEPHROTIC SYNDROME
     Dosage: UNK UNK, UNKNOWN FREQ.
     Route: 065
  2. TACROLIMUS. [Suspect]
     Active Substance: TACROLIMUS
     Route: 048
     Dates: start: 20140322
  3. TACROLIMUS. [Suspect]
     Active Substance: TACROLIMUS
     Indication: NEPHROTIC SYNDROME
     Route: 048
  4. TACROLIMUS. [Suspect]
     Active Substance: TACROLIMUS
     Dosage: 0.5 MG, EVERY 12 HOURS
     Route: 048
     Dates: start: 20140521
  5. VALSARTAN. [Concomitant]
     Active Substance: VALSARTAN
     Indication: RENAL DISORDER
     Dosage: 20 MG/KG, ONCE DAILY (EVERY NIGHT)
     Route: 065
  6. PREDNISONE ACETATE [Concomitant]
     Active Substance: PREDNISONE ACETATE
     Route: 065
     Dates: end: 20140515
  7. PREDNISONE ACETATE [Concomitant]
     Active Substance: PREDNISONE ACETATE
     Route: 065
     Dates: start: 20140720
  8. TACROLIMUS. [Suspect]
     Active Substance: TACROLIMUS
     Dosage: 0.5 MG, EVERY 12 HOURS
     Route: 048
     Dates: start: 20140720
  9. TACROLIMUS. [Suspect]
     Active Substance: TACROLIMUS
     Dosage: 1.5 MG, ONCE DAILY (0.5 MG IN THE MORNING, 1 MG IN THE EVENING)
     Route: 048
     Dates: start: 20140801
  10. TACROLIMUS. [Suspect]
     Active Substance: TACROLIMUS
     Dosage: UNK, UNKNOWN FREQ.
     Route: 048
     Dates: start: 20141023
  11. TACROLIMUS. [Suspect]
     Active Substance: TACROLIMUS
     Dosage: UNK, TWICE DAILY (0.5 MG IN MORNING, 1 MG IN EVENING)
     Route: 048
     Dates: end: 20141102
  12. PREDNISONE ACETATE [Concomitant]
     Active Substance: PREDNISONE ACETATE
     Route: 065
     Dates: start: 20140901
  13. PREDNISONE ACETATE [Concomitant]
     Active Substance: PREDNISONE ACETATE
     Route: 065
     Dates: start: 20141008
  14. PREDNISONE ACETATE [Concomitant]
     Active Substance: PREDNISONE ACETATE
     Route: 065
     Dates: start: 20141023
  15. PREDNISONE ACETATE [Concomitant]
     Active Substance: PREDNISONE ACETATE
     Route: 065
  16. DIPYRIDAMOLE. [Concomitant]
     Active Substance: DIPYRIDAMOLE
     Indication: RENAL DISORDER
     Route: 065

REACTIONS (3)
  - Off label use [Unknown]
  - Chronic kidney disease [Unknown]
  - Pancreatitis acute [Recovered/Resolved]
